FAERS Safety Report 5089188-X (Version None)
Quarter: 2006Q3

REPORT INFORMATION
  Report Type: 
  Country: None (occurrence: None)
  Receive Date: 20060727
  Receipt Date: 20060530
  Transmission Date: 20061208
  Serious: Yes (Other)
  Sender: FDA-Public Use
  Company Number: 2006070910

PATIENT
  Sex: Male
  Weight: 72.5755 kg

DRUGS (11)
  1. LYRICA [Suspect]
     Indication: NEURALGIA
     Dosage: 50 MG ( 50 MG, 1 IN 1 D), UNKNOWN
     Route: 065
     Dates: start: 20060101
  2. METOPROLOL (METOPROLOL) [Concomitant]
  3. LISINOPRIL [Concomitant]
  4. SOTALOL (SOTALOL) [Concomitant]
  5. ADVICOR [Concomitant]
  6. POTASSIUM (POTASSIUM) [Concomitant]
  7. FUROSEMIDE [Concomitant]
  8. NORVASC [Concomitant]
  9. RANITIDINE [Concomitant]
  10. ALLOPURINOL [Concomitant]
  11. COLCHICUM JTL LIQ [Concomitant]

REACTIONS (4)
  - BREAKTHROUGH PAIN [None]
  - PARAESTHESIA [None]
  - PRURITUS [None]
  - SKIN IRRITATION [None]
